FAERS Safety Report 9745634 (Version 1)
Quarter: 2013Q4

REPORT INFORMATION
  Report Type: Spontaneous
  Country: US (occurrence: None)
  Receive Date: 20131205
  Receipt Date: 20131205
  Transmission Date: 20140711
  Serious: Yes (Hospitalization, Other)
  Sender: FDA-Public Use
  Company Number: None

PATIENT
  Age: 9 Month
  Sex: Male
  Weight: 7.8 kg

DRUGS (2)
  1. OMEGAVEN [Suspect]
     Indication: GASTROINTESTINAL DISORDER
     Dosage: 1G/KG, QD, INTRAVENOUS
     Dates: start: 20130301
  2. OMEGAVEN [Suspect]
     Indication: LIVER DISORDER
     Dosage: 1G/KG, QD, INTRAVENOUS
     Dates: start: 20130301

REACTIONS (5)
  - Bronchial hyperreactivity [None]
  - Rhinitis [None]
  - Pyrexia [None]
  - Condition aggravated [None]
  - Viral infection [None]
